FAERS Safety Report 24895324 (Version 2)
Quarter: 2025Q2

REPORT INFORMATION
  Report Type: Spontaneous
  Country: IN (occurrence: IN)
  Receive Date: 20250128
  Receipt Date: 20250608
  Transmission Date: 20250716
  Serious: Yes (Other)
  Sender: COHERUS
  Company Number: US-Coherus Biosciences, Inc-2025-COH-IN000031

PATIENT

DRUGS (3)
  1. PEGFILGRASTIM [Suspect]
     Active Substance: PEGFILGRASTIM
     Indication: Myxofibrosarcoma
     Dosage: 6 MG (DAY 4 OF EACH CHEMOTHERAPY CYCLE)
     Route: 058
  2. IFOSFAMIDE [Suspect]
     Active Substance: IFOSFAMIDE
     Indication: Myxofibrosarcoma
     Dosage: 1200 MG/M2 (6 CYCLES DAY 1 TO DAY 3)
     Route: 042
  3. DOXORUBICIN [Suspect]
     Active Substance: DOXORUBICIN
     Indication: Myxofibrosarcoma
     Dosage: 75 MG/M2, Q3WEEKS
     Route: 042

REACTIONS (1)
  - Febrile neutropenia [Recovered/Resolved]
